FAERS Safety Report 5481487-2 (Version None)
Quarter: 2007Q4

REPORT INFORMATION
  Report Type: 
  Country: None (occurrence: None)
  Receive Date: 20071005
  Receipt Date: 20071005
  Transmission Date: 20080405
  Serious: Yes (Hospitalization)
  Sender: FDA-Public Use
  Company Number: None

PATIENT
  Age: 83 Year
  Sex: Male

DRUGS (2)
  1. ETODOLAC [Suspect]
     Indication: ARTHROPATHY
     Dosage: 500MG BID PO
     Route: 048
     Dates: start: 20050620, end: 20070607
  2. ETODOLAC [Suspect]
     Indication: BACK DISORDER
     Dosage: 500MG BID PO
     Route: 048
     Dates: start: 20050620, end: 20070607

REACTIONS (2)
  - NEPHRITIS INTERSTITIAL [None]
  - RENAL FAILURE ACUTE [None]
